FAERS Safety Report 22148577 (Version 1)
Quarter: 2023Q1

REPORT INFORMATION
  Report Type: Spontaneous
  Country: US (occurrence: US)
  Receive Date: 20230328
  Receipt Date: 20230328
  Transmission Date: 20230417
  Serious: No
  Sender: FDA-Public Use
  Company Number: US-MYLANLABS-2023M1025802

PATIENT
  Sex: Female
  Weight: 84 kg

DRUGS (1)
  1. METOPROLOL [Suspect]
     Active Substance: METOPROLOL
     Indication: Hypertension
     Dosage: 25 MILLIGRAM, BID (ONE TAB TWICE A DAY WITH FOOD)START:03-AUG-2022
     Route: 048
     Dates: end: 202301

REACTIONS (5)
  - Burning sensation [Unknown]
  - Blister [Unknown]
  - Dry skin [Unknown]
  - Hypersensitivity [Unknown]
  - Rash macular [Unknown]

NARRATIVE: CASE EVENT DATE: 20220101
